FAERS Safety Report 8914945 (Version 1)
Quarter: 2012Q4

REPORT INFORMATION
  Report Type: Report from Study
  Country: US (occurrence: US)
  Receive Date: 20121119
  Receipt Date: 20121119
  Transmission Date: 20130627
  Serious: Yes (Death, Hospitalization)
  Sender: FDA-Public Use
  Company Number: US-ROCHE-690184

PATIENT
  Sex: Male
  Weight: 59 kg

DRUGS (1)
  1. CAPECITABINE [Suspect]
     Indication: PROSTATE CANCER
     Route: 048

REACTIONS (3)
  - Constipation [Unknown]
  - Fatigue [Unknown]
  - Death [Fatal]
